FAERS Safety Report 19173253 (Version 3)
Quarter: 2021Q2

REPORT INFORMATION
  Report Type: Spontaneous
  Country: IT (occurrence: IT)
  Receive Date: 20210423
  Receipt Date: 20210429
  Transmission Date: 20210717
  Serious: Yes (Life-Threatening)
  Sender: FDA-Public Use
  Company Number: IT-ALLERGAN-2115974US

PATIENT
  Sex: Male
  Weight: 80 kg

DRUGS (1)
  1. XYDALBA [Suspect]
     Active Substance: DALBAVANCIN HYDROCHLORIDE
     Indication: OSTEOMYELITIS CHRONIC
     Dosage: 1500 MG, SINGLE
     Route: 041
     Dates: start: 20210226, end: 20210226

REACTIONS (6)
  - Respiratory distress [Recovered/Resolved]
  - Pruritus [Recovered/Resolved]
  - Off label use [Unknown]
  - Throat tightness [Recovered/Resolved]
  - Hiccups [Recovered/Resolved]
  - Nausea [Recovered/Resolved]

NARRATIVE: CASE EVENT DATE: 20210226
